FAERS Safety Report 19763414 (Version 6)
Quarter: 2021Q4

REPORT INFORMATION
  Report Type: Report from Study
  Country: US (occurrence: US)
  Receive Date: 20210830
  Receipt Date: 20211213
  Transmission Date: 20220303
  Serious: No
  Sender: FDA-Public Use
  Company Number: US-NOVARTISTESTPH-NVSC2021US194559

PATIENT
  Sex: Female

DRUGS (1)
  1. KESIMPTA [Suspect]
     Active Substance: OFATUMUMAB
     Indication: Multiple sclerosis
     Dosage: 20 MG
     Route: 065

REACTIONS (12)
  - Nausea [Recovering/Resolving]
  - Pain [Recovering/Resolving]
  - Pain in extremity [Recovering/Resolving]
  - Fall [Unknown]
  - Arthralgia [Unknown]
  - Crying [Unknown]
  - Limb discomfort [Unknown]
  - Incorrect dose administered [Unknown]
  - Product administration error [Unknown]
  - Head injury [Unknown]
  - Visual impairment [Unknown]
  - Drug ineffective [Unknown]
